FAERS Safety Report 13486043 (Version 3)
Quarter: 2017Q2

REPORT INFORMATION
  Report Type: Spontaneous
  Country: US (occurrence: US)
  Receive Date: 20170426
  Receipt Date: 20170511
  Transmission Date: 20170830
  Serious: Yes (Hospitalization)
  Sender: FDA-Public Use
  Company Number: US-VIFOR (INTERNATIONAL) INC.-VIT-2017-04412

PATIENT
  Age: 70 Year
  Sex: Female
  Weight: 58.5 kg

DRUGS (11)
  1. MIRCERA [Suspect]
     Active Substance: METHOXY POLYETHYLENE GLYCOL-EPOETIN BETA
     Indication: NEPHROGENIC ANAEMIA
     Route: 040
     Dates: start: 20170408, end: 20170408
  2. PORCINE [Concomitant]
     Route: 040
     Dates: start: 20170408, end: 20170408
  3. ACETYLSALICYLIC ACID [Concomitant]
     Active Substance: ASPIRIN
     Route: 048
     Dates: start: 20170408, end: 20170408
  4. ATROVENT SVN [Concomitant]
     Dates: start: 20170408, end: 20170408
  5. CARVEDILOL. [Concomitant]
     Active Substance: CARVEDILOL
  6. CALCITRIOL. [Concomitant]
     Active Substance: CALCITRIOL
  7. PROVENTIL SVN [Concomitant]
     Dates: start: 20170408, end: 20170408
  8. DECADRON [Concomitant]
     Active Substance: DEXAMETHASONE
     Route: 040
     Dates: start: 20170408, end: 20170408
  9. HYDROCODONE [Concomitant]
     Active Substance: HYDROCODONE
  10. LIDOCAINE. [Concomitant]
     Active Substance: LIDOCAINE
  11. LOSARTAN. [Concomitant]
     Active Substance: LOSARTAN

REACTIONS (17)
  - Pulse absent [Recovered/Resolved]
  - Tachypnoea [Recovered/Resolved]
  - Cardiomegaly [Recovered/Resolved]
  - Acute myocardial infarction [Recovered/Resolved]
  - Oedema peripheral [Recovered/Resolved]
  - Cough [Recovered/Resolved]
  - Anxiety [Recovered/Resolved]
  - Flatulence [Recovered/Resolved]
  - Dyspnoea [Recovered/Resolved]
  - Tachycardia [Recovered/Resolved]
  - Unresponsive to stimuli [Recovered/Resolved]
  - Atrial flutter [Recovered/Resolved]
  - Respiratory arrest [Recovered/Resolved]
  - Cardiac arrest [Recovered/Resolved]
  - Atrial fibrillation [Recovered/Resolved]
  - Tachyarrhythmia [Recovered/Resolved]
  - Malaise [Recovered/Resolved]

NARRATIVE: CASE EVENT DATE: 20170408
